FAERS Safety Report 13044299 (Version 1)
Quarter: 2016Q4

REPORT INFORMATION
  Report Type: Spontaneous
  Country: US (occurrence: US)
  Receive Date: 20161220
  Receipt Date: 20161220
  Transmission Date: 20170207
  Serious: No
  Sender: FDA-Public Use
  Company Number: US-ACTAVIS-2016-02909

PATIENT
  Age: 61 Year
  Sex: Male

DRUGS (1)
  1. MINOXIDIL (AMALLC) [Suspect]
     Active Substance: MINOXIDIL
     Indication: ALOPECIA
     Dosage: 1 ML, APPPLIED IN THE MORNING AND NIGHT
     Route: 061

REACTIONS (3)
  - Pain of skin [Not Recovered/Not Resolved]
  - Wrong technique in product usage process [Unknown]
  - Skin irritation [Not Recovered/Not Resolved]

NARRATIVE: CASE EVENT DATE: 201512
